FAERS Safety Report 24214516 (Version 1)
Quarter: 2024Q3

REPORT INFORMATION
  Report Type: Spontaneous
  Country: AU (occurrence: AU)
  Receive Date: 20240815
  Receipt Date: 20240815
  Transmission Date: 20241017
  Serious: Yes (Other)
  Sender: INCYTE
  Company Number: AU-002147023-NVSC2024AU164406

PATIENT

DRUGS (1)
  1. RUXOLITINIB [Suspect]
     Active Substance: RUXOLITINIB
     Indication: Myelofibrosis
     Dosage: 25 MG, BID (2 YEARS)
     Route: 065

REACTIONS (5)
  - Haemoglobin abnormal [Unknown]
  - Splenomegaly [Unknown]
  - Platelet count abnormal [Unknown]
  - Therapeutic response shortened [Unknown]
  - White blood cell count abnormal [Unknown]
